FAERS Safety Report 7048294-0 (Version None)
Quarter: 2010Q4

REPORT INFORMATION
  Report Type: 
  Country: None (occurrence: None)
  Receive Date: 20101015
  Receipt Date: 20101006
  Transmission Date: 20110411
  Serious: Yes (Hospitalization)
  Sender: FDA-Public Use
  Company Number: US-US-EMD SERONO, INC.-7020777

PATIENT
  Sex: Male
  Weight: 93 kg

DRUGS (8)
  1. REBIF [Suspect]
     Indication: MULTIPLE SCLEROSIS
     Route: 058
     Dates: start: 20090408
  2. BIPOLAR MEDICATIONS [Concomitant]
     Indication: BIPOLAR DISORDER
  3. NEUROPATHY MEDICATIONS [Concomitant]
     Indication: NEUROPATHY PERIPHERAL
  4. CHOLESTEROL MEDICATIONS [Concomitant]
     Indication: BLOOD CHOLESTEROL INCREASED
  5. INSULIN [Concomitant]
     Indication: DIABETES MELLITUS
  6. METFORMIN [Concomitant]
     Indication: DIABETES MELLITUS
  7. TYLENOL [Concomitant]
     Indication: PREMEDICATION
  8. MOTRIN [Concomitant]
     Indication: PREMEDICATION

REACTIONS (6)
  - BACTERAEMIA [None]
  - FALL [None]
  - FIBULA FRACTURE [None]
  - INJECTION SITE ERYTHEMA [None]
  - PNEUMONIA [None]
  - PULMONARY CONGESTION [None]
